FAERS Safety Report 6938630-5 (Version None)
Quarter: 2010Q3

REPORT INFORMATION
  Report Type: 
  Country: None (occurrence: None)
  Receive Date: 20100824
  Receipt Date: 20100818
  Transmission Date: 20110219
  Serious: Yes (Death)
  Sender: FDA-Public Use
  Company Number: US-CELGENEUS-163-22393-10060229

PATIENT
  Age: 82 Year
  Sex: Male

DRUGS (1)
  1. ISTODAX [Suspect]
     Route: 051
     Dates: start: 20100518, end: 20100525

REACTIONS (1)
  - SUDDEN DEATH [None]
